FAERS Safety Report 20109862 (Version 2)
Quarter: 2021Q4

REPORT INFORMATION
  Report Type: Spontaneous
  Country: PL (occurrence: PL)
  Receive Date: 20211124
  Receipt Date: 20211220
  Transmission Date: 20220303
  Serious: No
  Sender: FDA-Public Use
  Company Number: PL-LUPIN PHARMACEUTICALS INC.-2021-22663

PATIENT
  Age: 25 Year
  Sex: Female

DRUGS (19)
  1. HYDROCORTISONE [Suspect]
     Active Substance: HYDROCORTISONE
     Indication: Drug hypersensitivity
     Dosage: 500 MILLIGRAM
     Route: 042
  2. HYDROCORTISONE [Suspect]
     Active Substance: HYDROCORTISONE
     Indication: Dizziness
  3. HYDROCORTISONE [Suspect]
     Active Substance: HYDROCORTISONE
     Indication: Vomiting
  4. HYDROCORTISONE [Suspect]
     Active Substance: HYDROCORTISONE
     Indication: Blood pressure decreased
  5. HYDROCORTISONE [Suspect]
     Active Substance: HYDROCORTISONE
     Indication: Pallor
  6. HYDROCORTISONE [Suspect]
     Active Substance: HYDROCORTISONE
     Indication: Cyanosis
  7. BETAMETHASONE [Suspect]
     Active Substance: BETAMETHASONE
     Indication: Maternal therapy to enhance foetal lung maturity
     Dosage: 12 MILLIGRAM
     Route: 030
  8. PENICILLIN G BENZATHINE [Suspect]
     Active Substance: PENICILLIN G BENZATHINE
     Indication: Syphilis
     Dosage: FIRST DOSE
     Route: 030
  9. PENICILLIN G BENZATHINE [Suspect]
     Active Substance: PENICILLIN G BENZATHINE
     Dosage: SECOND DOSE
     Route: 030
  10. PENICILLIN V [Suspect]
     Active Substance: PENICILLIN V
     Indication: Immune tolerance induction
     Dosage: 1500 IU/ML; 0.1ML (0 MINUTES), 0.2ML (15 MINUTES), 0.4ML (30 MINUTES), 0.8ML (45 MINUTES), 1.6ML (60
     Route: 048
  11. PENICILLIN V [Suspect]
     Active Substance: PENICILLIN V
     Dosage: 15000 IU/ML; 2.6ML (120 MINUTES), 5.1ML (135 MINUTES), 10.2ML (150MINUTES)
     Route: 048
  12. PENICILLIN V [Suspect]
     Active Substance: PENICILLIN V
     Dosage: 150000 IU/ML; 2.0ML (165 MINUTES), 4.1ML (180 MINUTES)
     Route: 048
  13. SODIUM CHLORIDE [Suspect]
     Active Substance: SODIUM CHLORIDE
     Indication: Drug hypersensitivity
     Dosage: UNK
     Route: 042
  14. SODIUM CHLORIDE [Suspect]
     Active Substance: SODIUM CHLORIDE
     Indication: Dizziness
  15. SODIUM CHLORIDE [Suspect]
     Active Substance: SODIUM CHLORIDE
     Indication: Vomiting
  16. SODIUM CHLORIDE [Suspect]
     Active Substance: SODIUM CHLORIDE
     Indication: Blood pressure decreased
  17. SODIUM CHLORIDE [Suspect]
     Active Substance: SODIUM CHLORIDE
     Indication: Pallor
  18. SODIUM CHLORIDE [Suspect]
     Active Substance: SODIUM CHLORIDE
     Indication: Cyanosis
  19. PENICILLIN G PROCAINE [Suspect]
     Active Substance: PENICILLIN G PROCAINE
     Indication: Syphilis
     Dosage: 600000 IU/ML
     Route: 030

REACTIONS (1)
  - Exposure during pregnancy [Unknown]
